FAERS Safety Report 15472855 (Version 2)
Quarter: 2018Q4

REPORT INFORMATION
  Report Type: Spontaneous
  Country: DE (occurrence: DE)
  Receive Date: 20181008
  Receipt Date: 20181019
  Transmission Date: 20190205
  Serious: Yes (Other)
  Sender: FDA-Public Use
  Company Number: DE-AUROBINDO-AUR-APL-2018-048707

PATIENT
  Age: 16 Year
  Sex: Male

DRUGS (10)
  1. AMIODARONE [Suspect]
     Active Substance: AMIODARONE
     Indication: VENTRICULAR TACHYCARDIA
     Dosage: REDUCED DOSE ()
  2. SOTALOL. [Concomitant]
     Active Substance: SOTALOL
     Indication: MYOCARDITIS
     Dosage: UNK
     Route: 065
  3. METOPROLOL. [Concomitant]
     Active Substance: METOPROLOL
     Dosage: ()
  4. AMIODARONE [Suspect]
     Active Substance: AMIODARONE
     Indication: ARRHYTHMIA
     Dosage: 200 MILLIGRAM 5 DAYS/WEEK
     Route: 065
  5. PREDNISONE. [Suspect]
     Active Substance: PREDNISONE
     Indication: IMMUNOSUPPRESSION
     Dosage: UNK
     Route: 065
  6. RAMIPRIL. [Concomitant]
     Active Substance: RAMIPRIL
     Indication: MYOCARDITIS
     Dosage: UNK
     Route: 065
  7. AMIODARONE [Suspect]
     Active Substance: AMIODARONE
     Dosage: 5 DAYS/WEEK, 2.7 MG/KG
  8. SOTALOL. [Concomitant]
     Active Substance: SOTALOL
     Dosage: ()
  9. METOPROLOL. [Concomitant]
     Active Substance: METOPROLOL
     Indication: PRODUCT USED FOR UNKNOWN INDICATION
     Dosage: UNK
     Route: 065
  10. RAMIPRIL. [Concomitant]
     Active Substance: RAMIPRIL
     Dosage: ()

REACTIONS (7)
  - Thyroiditis [Unknown]
  - Hyperhidrosis [Unknown]
  - Weight decreased [Unknown]
  - Sleep disorder [Unknown]
  - Hypothyroidism [Recovering/Resolving]
  - Drug withdrawal syndrome [Unknown]
  - Hyperthyroidism [Recovering/Resolving]
